FAERS Safety Report 5676039-5 (Version None)
Quarter: 2008Q1

REPORT INFORMATION
  Report Type: 
  Country: None (occurrence: None)
  Receive Date: 20080321
  Receipt Date: 20080312
  Transmission Date: 20080703
  Serious: Yes (Other)
  Sender: FDA-Public Use
  Company Number: FR-JNJFOC-20080302938

PATIENT
  Sex: Male
  Weight: 2.51 kg

DRUGS (6)
  1. PREZISTA [Suspect]
     Indication: DRUG EXPOSURE DURING PREGNANCY
  2. NORVIR [Suspect]
     Indication: DRUG EXPOSURE DURING PREGNANCY
  3. VIREAD [Suspect]
     Indication: DRUG EXPOSURE DURING PREGNANCY
  4. ZIAGEN [Suspect]
     Indication: DRUG EXPOSURE DURING PREGNANCY
  5. REYATAZ [Concomitant]
     Indication: DRUG EXPOSURE DURING PREGNANCY
  6. TELZIR [Concomitant]
     Indication: DRUG EXPOSURE DURING PREGNANCY

REACTIONS (1)
  - PREMATURE BABY [None]
